FAERS Safety Report 6095027-0 (Version None)
Quarter: 2009Q1

REPORT INFORMATION
  Report Type: 
  Country: None (occurrence: None)
  Receive Date: 20090227
  Receipt Date: 20080606
  Transmission Date: 20090719
  Serious: Yes (Other)
  Sender: FDA-Public Use
  Company Number: A0683567A

PATIENT
  Age: 8 Year
  Sex: Male

DRUGS (1)
  1. LAMICTAL [Suspect]
     Indication: DRUG USE FOR UNKNOWN INDICATION
     Route: 048

REACTIONS (6)
  - BLISTER [None]
  - DERMATITIS BULLOUS [None]
  - RASH MACULO-PAPULAR [None]
  - SCAR [None]
  - SKIN LESION [None]
  - SKIN REACTION [None]
